FAERS Safety Report 5488076-4 (Version None)
Quarter: 2007Q4

REPORT INFORMATION
  Report Type: 
  Country: None (occurrence: None)
  Receive Date: 20071017
  Receipt Date: 20071010
  Transmission Date: 20080405
  Serious: Yes (Other)
  Sender: FDA-Public Use
  Company Number: GB-JNJFOC-20071002893

PATIENT
  Age: 23 Month
  Sex: Female
  Weight: 12.4 kg

DRUGS (1)
  1. TOPIRAMATE [Suspect]
     Indication: ACCIDENTAL EXPOSURE
     Route: 048

REACTIONS (8)
  - ACCIDENTAL DRUG INTAKE BY CHILD [None]
  - AGITATION [None]
  - BLUNTED AFFECT [None]
  - CRYING [None]
  - EXTRAPYRAMIDAL DISORDER [None]
  - EYE ROLLING [None]
  - IRRITABILITY [None]
  - UNRESPONSIVE TO STIMULI [None]
